FAERS Safety Report 5680276-3 (Version None)
Quarter: 2008Q1

REPORT INFORMATION
  Report Type: 
  Country: None (occurrence: None)
  Receive Date: 20080326
  Receipt Date: 20080317
  Transmission Date: 20080703
  Serious: Yes (Hospitalization)
  Sender: FDA-Public Use
  Company Number: US-JNJFOC-20080304428

PATIENT
  Sex: Female
  Weight: 48.54 kg

DRUGS (3)
  1. REMICADE [Suspect]
     Indication: CROHN'S DISEASE
     Dosage: 3 VIALS
     Route: 042
  2. 5 ASA [Concomitant]
  3. 6-MP [Concomitant]

REACTIONS (1)
  - GASTROINTESTINAL INFLAMMATION [None]
